FAERS Safety Report 4359340-7 (Version None)
Quarter: 2004Q2

REPORT INFORMATION
  Report Type: 
  Country: None (occurrence: None)
  Receive Date: 20040512
  Receipt Date: 20040317
  Transmission Date: 20050107
  Serious: Yes (Other)
  Sender: FDA-Public Use
  Company Number: ZA-JNJFOC-20040204782

PATIENT
  Age: 12 Year
  Sex: Male
  Weight: 35 kg

DRUGS (4)
  1. TOPIRAMATE [Suspect]
     Indication: EPILEPSY
     Dosage: 25 MG, 2 IN 1 DAY; ORAL (SEE IMAGE)
     Route: 048
     Dates: start: 20031103, end: 20031202
  2. TOPIRAMATE [Suspect]
     Indication: EPILEPSY
     Dosage: 25 MG, 2 IN 1 DAY; ORAL (SEE IMAGE)
     Route: 048
     Dates: start: 20031202
  3. CARBAMAZEPINE [Concomitant]
  4. LAMOTRIGINE [Concomitant]

REACTIONS (5)
  - CONVULSION [None]
  - DROOLING [None]
  - DRUG INEFFECTIVE [None]
  - DYSKINESIA [None]
  - DYSPHEMIA [None]
